FAERS Safety Report 9100360 (Version 2)
Quarter: 2013Q1

REPORT INFORMATION
  Report Type: Spontaneous
  Country: GB (occurrence: GB)
  Receive Date: 20130215
  Receipt Date: 20130307
  Transmission Date: 20140127
  Serious: Yes (Other)
  Sender: FDA-Public Use
  Company Number: GB-PFIZER INC-2013060288

PATIENT
  Age: 2 Year
  Sex: Male
  Weight: 13.3 kg

DRUGS (2)
  1. EPIPEN JR [Suspect]
     Indication: HYPERSENSITIVITY
     Dosage: 1 DF, 1 IN 1 TOTAL
     Route: 030
     Dates: start: 20121129
  2. PIRITON [Concomitant]
     Indication: HYPERSENSITIVITY
     Dosage: UNK
     Route: 048

REACTIONS (3)
  - Laceration [Unknown]
  - Psychological trauma [Unknown]
  - Device difficult to use [Recovered/Resolved]
